FAERS Safety Report 8516012-2 (Version None)
Quarter: 2012Q3

REPORT INFORMATION
  Report Type: 
  Country: None (occurrence: None)
  Receive Date: 20120717
  Receipt Date: 20120709
  Transmission Date: 20120928
  Serious: Yes (Hospitalization)
  Sender: FDA-Public Use
  Company Number: US-ABBOTT-12P-163-0954744-00

PATIENT
  Sex: Male
  Weight: 77.634 kg

DRUGS (9)
  1. BENZOPRIL [Concomitant]
     Indication: HYPERTENSION
  2. FOLIC ACID [Concomitant]
     Indication: RHEUMATOID ARTHRITIS
  3. LORTAB [Concomitant]
     Indication: ARTHRALGIA
  4. PLAVIX [Concomitant]
     Indication: THROMBOSIS PROPHYLAXIS
  5. CARVEDILOL [Concomitant]
     Indication: HYPERTENSION
  6. METHOTREXATE [Concomitant]
     Indication: RHEUMATOID ARTHRITIS
  7. FAMOTIDINE [Concomitant]
     Indication: PAIN PROPHYLAXIS
  8. ASPIRIN [Concomitant]
     Indication: PROPHYLAXIS
  9. HUMIRA [Suspect]
     Indication: RHEUMATOID ARTHRITIS
     Dates: start: 20080101, end: 20091101

REACTIONS (3)
  - ARTHRALGIA [None]
  - CHEST PAIN [None]
  - FATIGUE [None]
